FAERS Safety Report 7577452-1 (Version None)
Quarter: 2011Q2

REPORT INFORMATION
  Report Type: 
  Country: None (occurrence: None)
  Receive Date: 20110628
  Receipt Date: 20110202
  Transmission Date: 20111010
  Serious: Yes (Hospitalization)
  Sender: FDA-Public Use
  Company Number: US-BAYER-201034629NA

PATIENT
  Age: 22 Year
  Sex: Female
  Weight: 31.746 kg

DRUGS (15)
  1. DIAZEPAM [Concomitant]
  2. LORATADINE [Concomitant]
     Dosage: 10 MG, UNK
  3. CITALOPRAM HYDROBROMIDE [Concomitant]
     Dosage: 40 MG, UNK
  4. PROMETHAZINE [Concomitant]
     Dosage: 25 MG, UNK
  5. METRONIDAZOLE [Concomitant]
     Dosage: 250 MG, UNK
  6. CEPHALEXIN [Concomitant]
     Dosage: 500 MG, UNK
  7. VIOXX [Concomitant]
     Dosage: 25 MG, UNK
  8. YAZ [Suspect]
     Indication: PRODUCT USED FOR UNKNOWN INDICATION
     Route: 048
  9. IBUPROFEN [Concomitant]
     Dosage: 800 MG, UNK
  10. ERYTHROMYCIN [Concomitant]
     Dosage: 400 MG, UNK
  11. SULFATRIM [SULFAMETHOXAZOLE,TRIMETHOPRIM] [Concomitant]
  12. RANITIDINE [Concomitant]
     Dosage: 150 MG, UNK
  13. FLUCONAZOLE [Concomitant]
     Dosage: 150 MG, UNK
  14. YASMIN [Suspect]
     Indication: PRODUCT USED FOR UNKNOWN INDICATION
     Route: 048
  15. FLUOXETINE HCL [Concomitant]
     Dosage: 20 MG, UNK

REACTIONS (2)
  - CHOLECYSTITIS CHRONIC [None]
  - ABDOMINAL PAIN UPPER [None]
